FAERS Safety Report 9425163 (Version 3)
Quarter: 2015Q2

REPORT INFORMATION
  Report Type: Spontaneous
  Country: US (occurrence: US)
  Receive Date: 20130729
  Receipt Date: 20150525
  Transmission Date: 20150821
  Serious: Yes (Other)
  Sender: FDA-Public Use
  Company Number: US-JNJFOC-20130608544

PATIENT
  Age: 66 Year
  Sex: Male
  Weight: 97.52 kg

DRUGS (8)
  1. REMICADE [Suspect]
     Active Substance: INFLIXIMAB
     Indication: CROHN^S DISEASE
     Route: 042
     Dates: start: 2006, end: 2007
  2. CERTOLIZUMAB [Suspect]
     Active Substance: CERTOLIZUMAB
     Indication: CROHN^S DISEASE
     Dosage: ~6 MONTHS
     Route: 065
     Dates: start: 2010
  3. HERBAL MEDICATIONS [Concomitant]
     Route: 065
  4. ADALIMUMAB [Suspect]
     Active Substance: ADALIMUMAB
     Indication: CROHN^S DISEASE
     Route: 058
     Dates: start: 2008, end: 2010
  5. VITAMIN [Concomitant]
     Active Substance: VITAMINS
     Route: 065
  6. ANTIBIOTICS [Concomitant]
     Active Substance: UNSPECIFIED INGREDIENT
     Route: 065
  7. PREDNISONE. [Concomitant]
     Active Substance: PREDNISONE
     Route: 065
  8. BUDESONIDE. [Concomitant]
     Active Substance: BUDESONIDE
     Route: 065

REACTIONS (5)
  - Herpes zoster [Recovered/Resolved]
  - Papilloma viral infection [Unknown]
  - Upper respiratory tract infection [Unknown]
  - Crohn^s disease [Unknown]
  - Bronchiectasis [Unknown]

NARRATIVE: CASE EVENT DATE: 201305
